FAERS Safety Report 4909114-0 (Version None)
Quarter: 2006Q1

REPORT INFORMATION
  Report Type: 
  Country: None (occurrence: None)
  Receive Date: 20060210
  Receipt Date: 20060210
  Transmission Date: 20060701
  Serious: Yes (Other)
  Sender: FDA-Public Use
  Company Number: None

PATIENT
  Age: 12 Year
  Sex: Female
  Weight: 37.6486 kg

DRUGS (2)
  1. ABILIFY [Suspect]
     Indication: AFFECTIVE DISORDER
     Dosage: 7.5 MG DAILY ORALLY
     Route: 048
     Dates: start: 20050930
  2. ZITHROMAX [Concomitant]

REACTIONS (7)
  - BODY TEMPERATURE INCREASED [None]
  - BRONCHITIS [None]
  - COUGH [None]
  - HEADACHE [None]
  - HYPERPYREXIA [None]
  - NEUROLEPTIC MALIGNANT SYNDROME [None]
  - VISUAL FIELD DEFECT [None]
